FAERS Safety Report 8111720-X (Version None)
Quarter: 2012Q1

REPORT INFORMATION
  Report Type: 
  Country: None (occurrence: None)
  Receive Date: 20120203
  Receipt Date: 20120127
  Transmission Date: 20120608
  Serious: Yes (Death, Other)
  Sender: FDA-Public Use
  Company Number: DE-EISAI INC-E7389-02010-SPO-DE

PATIENT
  Sex: Female

DRUGS (1)
  1. HALAVEN [Suspect]
     Indication: BREAST CANCER METASTATIC
     Dosage: UNKNOWN
     Route: 041

REACTIONS (1)
  - PANCYTOPENIA [None]
